FAERS Safety Report 8431915-5 (Version None)
Quarter: 2012Q2

REPORT INFORMATION
  Report Type: 
  Country: None (occurrence: None)
  Receive Date: 20120613
  Receipt Date: 20120606
  Transmission Date: 20120825
  Serious: Yes (Hospitalization, Other)
  Sender: FDA-Public Use
  Company Number: DE-UCBSA-058670

PATIENT
  Sex: Female

DRUGS (1)
  1. VIMPAT [Suspect]
     Dosage: 100 MG

REACTIONS (2)
  - DRUG INTOLERANCE [None]
  - TYPE 1 DIABETES MELLITUS [None]
